FAERS Safety Report 17475066 (Version 2)
Quarter: 2025Q3

REPORT INFORMATION
  Report Type: Report from Study
  Country: EU (occurrence: EU)
  Receive Date: 20200228
  Receipt Date: 20250805
  Transmission Date: 20251020
  Serious: Yes (Hospitalization, Other)
  Sender: JOHNSON AND JOHNSON
  Company Number: EU-JNJFOC-20190829223

PATIENT

DRUGS (1)
  1. STELARA [Suspect]
     Active Substance: USTEKINUMAB
     Indication: Crohn^s disease
     Route: 058

REACTIONS (9)
  - Septic shock [Unknown]
  - Pharyngotonsillitis [Unknown]
  - Psoas abscess [Unknown]
  - Respiratory tract infection [Unknown]
  - Injection site reaction [Unknown]
  - Influenza like illness [Unknown]
  - Gastrointestinal infection [Unknown]
  - Urinary tract infection [Unknown]
  - Arthralgia [Unknown]
